FAERS Safety Report 17632113 (Version 1)
Quarter: 2020Q2

REPORT INFORMATION
  Report Type: Spontaneous
  Country: US (occurrence: US)
  Receive Date: 20200403
  Receipt Date: 20200403
  Transmission Date: 20200713
  Serious: Yes (Other)
  Sender: FDA-Public Use
  Company Number: None

PATIENT
  Age: 59 Year
  Sex: Female
  Weight: 112.49 kg

DRUGS (2)
  1. MYCOPHENOLATE [Suspect]
     Active Substance: MYCOPHENOLIC ACID
     Indication: SYSTEMIC LUPUS ERYTHEMATOSUS
     Dosage: ?          OTHER ROUTE:5TASB DAILY?
     Route: 048
     Dates: start: 20200310
  2. MYCOPHENOLATE [Suspect]
     Active Substance: MYCOPHENOLIC ACID
     Indication: INTERSTITIAL LUNG DISEASE
     Dosage: ?          OTHER ROUTE:5TASB DAILY?
     Route: 048
     Dates: start: 20200310

REACTIONS (3)
  - Headache [None]
  - Product substitution issue [None]
  - Alopecia [None]

NARRATIVE: CASE EVENT DATE: 20200403
